FAERS Safety Report 7170733-5 (Version None)
Quarter: 2010Q4

REPORT INFORMATION
  Report Type: 
  Country: None (occurrence: None)
  Receive Date: 20101206
  Receipt Date: 20101123
  Transmission Date: 20110411
  Serious: Yes (Other)
  Sender: FDA-Public Use
  Company Number: 2010-01024

PATIENT
  Sex: Male
  Weight: 68.0396 kg

DRUGS (3)
  1. ZICAM COLD REMEDY RAPIDMELTS [Suspect]
     Indication: NASOPHARYNGITIS
     Dosage: 4X DAY FOR 2-3 DAYS
     Dates: start: 20101116, end: 20101118
  2. MULTI-VITAMIN [Concomitant]
  3. ASPIRIN [Concomitant]

REACTIONS (5)
  - CHILLS [None]
  - DYSURIA [None]
  - POLLAKIURIA [None]
  - PROSTATOMEGALY [None]
  - PYREXIA [None]
